FAERS Safety Report 24708315 (Version 2)
Quarter: 2025Q2

REPORT INFORMATION
  Report Type: Spontaneous
  Country: US (occurrence: US)
  Receive Date: 20241207
  Receipt Date: 20250402
  Transmission Date: 20250717
  Serious: No
  Sender: SANOFI AVENTIS
  Company Number: US-SA-2024SA360969

PATIENT
  Age: 42 Year
  Sex: Female

DRUGS (8)
  1. DUPIXENT [Suspect]
     Active Substance: DUPILUMAB
     Indication: Dermatitis atopic
     Dosage: 300 MG, QOW
     Route: 058
     Dates: start: 20230420
  2. CELECOXIB [Concomitant]
     Active Substance: CELECOXIB
  3. CLOBETASOL [Concomitant]
     Active Substance: CLOBETASOL
  4. ETODOLAC [Concomitant]
     Active Substance: ETODOLAC
  5. FLUCONAZOLE [Concomitant]
     Active Substance: FLUCONAZOLE
  6. MELOXICAM [Concomitant]
     Active Substance: MELOXICAM
  7. OMEPRAZOLE [Concomitant]
     Active Substance: OMEPRAZOLE
  8. HYDROXYZINE HYDROCHLORIDE [Concomitant]
     Active Substance: HYDROXYZINE HYDROCHLORIDE

REACTIONS (4)
  - Sleep disorder due to a general medical condition [Unknown]
  - Discomfort [Unknown]
  - Dermatitis atopic [Unknown]
  - Rash [Unknown]

NARRATIVE: CASE EVENT DATE: 20240101
